FAERS Safety Report 18183611 (Version 1)
Quarter: 2020Q3

REPORT INFORMATION
  Report Type: Spontaneous
  Country: FR (occurrence: FR)
  Receive Date: 20200822
  Receipt Date: 20200822
  Transmission Date: 20201103
  Serious: Yes (Hospitalization)
  Sender: FDA-Public Use
  Company Number: NVSC2020FR230549

PATIENT
  Age: 77 Year
  Sex: Male

DRUGS (1)
  1. VOTRIENT [Suspect]
     Active Substance: PAZOPANIB HYDROCHLORIDE
     Indication: RENAL CANCER
     Dosage: 1 UNK, QD
     Route: 048
     Dates: start: 20200603

REACTIONS (2)
  - Encephalopathy [Recovering/Resolving]
  - Hyperammonaemia [Unknown]

NARRATIVE: CASE EVENT DATE: 20200617
